FAERS Safety Report 8071986-1 (Version None)
Quarter: 2012Q1

REPORT INFORMATION
  Report Type: 
  Country: None (occurrence: None)
  Receive Date: 20120119
  Receipt Date: 20120109
  Transmission Date: 20120608
  Serious: Yes (Death, Other)
  Sender: FDA-Public Use
  Company Number: 2012MA000539

PATIENT
  Age: 40 Year
  Sex: Male

DRUGS (2)
  1. VINORELBINE [Suspect]
     Indication: NEOPLASM MALIGNANT
     Dosage: 6X
  2. CISPLATIN [Concomitant]

REACTIONS (3)
  - LUNG NEOPLASM MALIGNANT [None]
  - NEOPLASM PROGRESSION [None]
  - METASTASIS [None]
